FAERS Safety Report 8016098-8 (Version None)
Quarter: 2011Q4

REPORT INFORMATION
  Report Type: 
  Country: None (occurrence: None)
  Receive Date: 20111230
  Receipt Date: 20111221
  Transmission Date: 20120403
  Serious: Yes (Other)
  Sender: FDA-Public Use
  Company Number: FR-BRISTOL-MYERS SQUIBB COMPANY-16313371

PATIENT
  Age: 84 Year
  Sex: Male

DRUGS (6)
  1. PERINDOPRIL ERBUMINE [Suspect]
     Dosage: 1DF:1 TABLET  COVERSYL 5 MG, FILM-COATED SCORED TABLET
     Route: 048
  2. PROCTOLOG [Suspect]
     Route: 054
  3. OMEPRAZOLE [Suspect]
     Dosage: 1DF:CAPSULE OMEPRAZOLE ACTAVIS 20 MG, ENTERIC-COATED CAPSULE
     Route: 048
  4. QUESTRAN [Suspect]
     Dosage: 3DF:3 SACHETS QUESTRAN 4 G, ORAL POWDER IN SACHETS
     Route: 048
  5. CLARITIN [Suspect]
     Dosage: 1 DF:1 TAB CLARITYNE 10 MG, TABLET
     Route: 048
  6. VALPROATE SODIUM [Suspect]
     Dosage: 2DF:2 SACHETS MICROPAKINE SR 250 MG, PROLONGED RELEASE GRANULES IN SACHETS
     Route: 048

REACTIONS (2)
  - LEUKOPENIA [None]
  - THROMBOCYTOPENIA [None]
